FAERS Safety Report 5411123-2 (Version None)
Quarter: 2007Q3

REPORT INFORMATION
  Report Type: 
  Country: None (occurrence: None)
  Receive Date: 20070808
  Receipt Date: 20070803
  Transmission Date: 20080115
  Serious: Yes (Hospitalization)
  Sender: FDA-Public Use
  Company Number: CAR-2007-004

PATIENT
  Age: 83 Year
  Sex: Female

DRUGS (1)
  1. SUCRALFATE [Suspect]
     Dosage: ORAL
     Route: 048
     Dates: start: 20070124

REACTIONS (1)
  - HEPATIC FUNCTION ABNORMAL [None]
